FAERS Safety Report 5144432-5 (Version None)
Quarter: 2006Q4

REPORT INFORMATION
  Report Type: 
  Country: None (occurrence: None)
  Receive Date: 20061031
  Receipt Date: 20061018
  Transmission Date: 20070319
  Serious: Yes (Death, Other)
  Sender: FDA-Public Use
  Company Number: 2006130829

PATIENT
  Sex: Female

DRUGS (2)
  1. METHYLPREDNISOLONE [Suspect]
     Indication: PULMONARY VASCULITIS
     Dosage: INTRAVENOUS
     Route: 042
     Dates: start: 20050101
  2. ALL OTHER THERAPEUTIC PRODUCTS [Concomitant]

REACTIONS (5)
  - CYTOMEGALOVIRUS INFECTION [None]
  - DISEASE RECURRENCE [None]
  - DRUG INEFFECTIVE [None]
  - HAEMORRHAGIC DIATHESIS [None]
  - MULTI-ORGAN FAILURE [None]
